FAERS Safety Report 6735297-6 (Version None)
Quarter: 2010Q2

REPORT INFORMATION
  Report Type: 
  Country: None (occurrence: None)
  Receive Date: 20100519
  Receipt Date: 20100409
  Transmission Date: 20101027
  Serious: Yes (Death)
  Sender: FDA-Public Use
  Company Number: 2010045260

PATIENT
  Age: 65 Year
  Sex: Female

DRUGS (1)
  1. FRAGMIN [Suspect]
     Indication: THROMBOSIS PROPHYLAXIS
     Dosage: 0.327 ML, DAILY, SUBCUTANEOUS
     Route: 058
     Dates: start: 20091101

REACTIONS (1)
  - PANCREATIC CARCINOMA [None]
